FAERS Safety Report 22653754 (Version 2)
Quarter: 2024Q4

REPORT INFORMATION
  Report Type: Spontaneous
  Country: US (occurrence: US)
  Receive Date: 20230629
  Receipt Date: 20241022
  Transmission Date: 20250115
  Serious: Yes (Hospitalization, Other)
  Sender: CATALYST PHARMA
  Company Number: US-CATALYST PHARMACEUTICALS, INC-US-CATA-23-00367

PATIENT
  Sex: Female

DRUGS (2)
  1. FIRDAPSE [Suspect]
     Active Substance: AMIFAMPRIDINE PHOSPHATE
     Indication: Myasthenic syndrome
     Dosage: UNKNOWN
     Route: 048
     Dates: start: 202203
  2. FIRDAPSE [Suspect]
     Active Substance: AMIFAMPRIDINE PHOSPHATE
     Dosage: 30 MG DAILY (ONE 10 MG TABLET 3 TIMES DAILY)
     Route: 048
     Dates: start: 20230615

REACTIONS (13)
  - Multiple sclerosis [Unknown]
  - Muscular weakness [Unknown]
  - Head discomfort [Recovering/Resolving]
  - Movement disorder [Unknown]
  - Typical aura without headache [Unknown]
  - Blood pressure abnormal [Unknown]
  - Migraine [Unknown]
  - Visual impairment [Unknown]
  - Fatigue [Recovering/Resolving]
  - Hypoaesthesia [Recovered/Resolved]
  - Paraesthesia oral [Not Recovered/Not Resolved]
  - Hypertension [Unknown]
  - Extra dose administered [Unknown]

NARRATIVE: CASE EVENT DATE: 20220101
